FAERS Safety Report 4358917-2 (Version None)
Quarter: 2004Q2

REPORT INFORMATION
  Report Type: 
  Country: None (occurrence: None)
  Receive Date: 20040511
  Receipt Date: 20040423
  Transmission Date: 20050107
  Serious: Yes (Death)
  Sender: FDA-Public Use
  Company Number: D01200301757

PATIENT
  Age: 58 Year
  Sex: Female
  Weight: 77 kg

DRUGS (21)
  1. CISPLATIN [Suspect]
     Indication: SMALL CELL LUNG CANCER EXTENSIVE STAGE
     Dosage: 80 MG/M2 CONT - INTRAVENOUS NOS
     Route: 042
     Dates: start: 20031110, end: 20031110
  2. ETOPOSIDE [Suspect]
     Indication: SMALL CELL LUNG CANCER EXTENSIVE STAGE
     Dosage: 120 MG/M2 GIVEN ON DAYS 1, 2 AND 3, IN A 30-MINUTE INFUSION - INTRAVENOUS NOS
     Route: 041
     Dates: start: 20031110, end: 20031112
  3. ESOMEPRAZOLE [Concomitant]
  4. MESALAZINE [Concomitant]
  5. ACETYLSALICYLATE CALCIUM [Concomitant]
  6. BECLOMETHASONE DIPROPIONATE [Concomitant]
  7. TROXERUTIN [Concomitant]
  8. BISOPROLOL [Concomitant]
  9. AMLODIPINE BESYLATE [Concomitant]
  10. DIDROKIT [Concomitant]
  11. ATORVASTATIN CALCIUM [Concomitant]
  12. PARACETAMOL WITH CODEINE [Concomitant]
  13. PSYLLIUM HYDROPHILIC MUCILLOID [Concomitant]
  14. HYDROCHLOROTHIAZIDE [Concomitant]
  15. GRANISETRON [Concomitant]
  16. DEXAMETHASONE [Concomitant]
  17. GLICLAZIDE [Concomitant]
  18. NYSTATIN [Concomitant]
  19. FLUCONAZOLE [Concomitant]
  20. FUROSEMIDE [Concomitant]
  21. CEFTAZIDIME PENTAHYDRATE [Concomitant]

REACTIONS (4)
  - DEHYDRATION [None]
  - FEBRILE NEUTROPENIA [None]
  - PERICARDIAL EFFUSION [None]
  - PERICARDITIS [None]
